FAERS Safety Report 8094191-1 (Version None)
Quarter: 2012Q1

REPORT INFORMATION
  Report Type: 
  Country: None (occurrence: None)
  Receive Date: 20120130
  Receipt Date: 20120130
  Transmission Date: 20120608
  Serious: Yes (Disabling)
  Sender: FDA-Public Use
  Company Number: None

PATIENT
  Age: 41 Year
  Sex: Female
  Weight: 58.967 kg

DRUGS (1)
  1. ALDARA [Suspect]
     Indication: SQUAMOUS CELL CARCINOMA
     Dosage: AS PRESCRIBED ON PACKAGE
     Route: 061
     Dates: start: 20110303, end: 20110510

REACTIONS (1)
  - THYROIDITIS [None]
